FAERS Safety Report 24951556 (Version 1)
Quarter: 2025Q1

REPORT INFORMATION
  Report Type: Spontaneous
  Country: US (occurrence: US)
  Receive Date: 20250210
  Receipt Date: 20250210
  Transmission Date: 20250409
  Serious: No
  Sender: INTRA-CELLULAR THERAPIES
  Company Number: US-INTRA-CELLULAR THERAPIES, INC.-2024ICT01760

PATIENT
  Sex: Female

DRUGS (3)
  1. CAPLYTA [Suspect]
     Active Substance: LUMATEPERONE
     Indication: Bipolar disorder
  2. CAPLYTA [Suspect]
     Active Substance: LUMATEPERONE
  3. CAPLYTA [Suspect]
     Active Substance: LUMATEPERONE

REACTIONS (4)
  - Cold sweat [Unknown]
  - Depressed mood [Unknown]
  - Withdrawal syndrome [Unknown]
  - Drug ineffective [Unknown]
